FAERS Safety Report 15010682 (Version 1)
Quarter: 2018Q2

REPORT INFORMATION
  Report Type: Spontaneous
  Country: US (occurrence: US)
  Receive Date: 20180529
  Receipt Date: 20180529
  Transmission Date: 20180711
  Serious: No
  Sender: FDA-Public Use
  Company Number: None

PATIENT
  Age: 23 Year
  Sex: Female
  Weight: 60.3 kg

DRUGS (2)
  1. SUBOXONE [Suspect]
     Active Substance: BUPRENORPHINE HYDROCHLORIDE\NALOXONE HYDROCHLORIDE
     Indication: DRUG THERAPY
     Dosage: ?          QUANTITY:28 1;?
     Route: 060
     Dates: start: 20171223
  2. VALERIAN ROOT [Concomitant]
     Active Substance: VALERIAN

REACTIONS (1)
  - Stomatitis [None]

NARRATIVE: CASE EVENT DATE: 20180520
